FAERS Safety Report 18547338 (Version 2)
Quarter: 2020Q4

REPORT INFORMATION
  Report Type: Spontaneous
  Country: SK (occurrence: SK)
  Receive Date: 20201125
  Receipt Date: 20201208
  Transmission Date: 20210114
  Serious: Yes (Hospitalization)
  Sender: FDA-Public Use
  Company Number: SK-GE HEALTHCARE LIFE SCIENCES-2020CSU005957

PATIENT

DRUGS (10)
  1. VISIPAQUE [Suspect]
     Active Substance: IODIXANOL
     Indication: PULMONARY EMBOLISM
  2. VISIPAQUE [Suspect]
     Active Substance: IODIXANOL
     Indication: FIBRIN D DIMER
  3. VISIPAQUE [Suspect]
     Active Substance: IODIXANOL
     Indication: COMPUTERISED TOMOGRAM THORAX
     Dosage: 65 ML,VIA PERIPHERAL VEIN UPPER LIMB, SINGLE
     Route: 042
     Dates: start: 20201105, end: 20201105
  4. SPIRIVA RESPIMAT [Concomitant]
     Active Substance: TIOTROPIUM BROMIDE
     Dosage: UNK
  5. EUPHYLLIN [THEOPHYLLINE] [Concomitant]
     Active Substance: THEOPHYLLINE
     Dosage: 200 MG
  6. ATROVENT [Concomitant]
     Active Substance: IPRATROPIUM BROMIDE
     Dosage: 20 ?G
  7. FLUTIFORM [Concomitant]
     Active Substance: FLUTICASONE PROPIONATE\FORMOTEROL FUMARATE
     Dosage: UNK
  8. MONTELUKAST [Concomitant]
     Active Substance: MONTELUKAST SODIUM
     Dosage: 10 MG
  9. XOLAIR [Concomitant]
     Active Substance: OMALIZUMAB
     Dosage: 300 MG
  10. VESSEL DUE F [Concomitant]
     Active Substance: SULODEXIDE
     Dosage: UNK

REACTIONS (3)
  - Musculoskeletal stiffness [Recovered/Resolved]
  - Erythema [Recovered/Resolved]
  - Paraesthesia [Recovered/Resolved]

NARRATIVE: CASE EVENT DATE: 20201105
